FAERS Safety Report 16868693 (Version 2)
Quarter: 2019Q4

REPORT INFORMATION
  Report Type: Spontaneous
  Country: CH (occurrence: CH)
  Receive Date: 20190930
  Receipt Date: 20191015
  Transmission Date: 20200122
  Serious: Yes (Other)
  Sender: FDA-Public Use
  Company Number: CH-EPIC PHARMA LLC-2019EPC00274

PATIENT
  Sex: Male

DRUGS (4)
  1. SALIVA [Concomitant]
     Route: 013
  2. METHADONE [Suspect]
     Active Substance: METHADONE HYDROCHLORIDE
     Route: 013
  3. WATER. [Concomitant]
     Active Substance: WATER
     Route: 013
  4. FLUNITRAZEPAM [Suspect]
     Active Substance: FLUNITRAZEPAM
     Route: 013

REACTIONS (1)
  - Compartment syndrome [Recovered/Resolved with Sequelae]
